FAERS Safety Report 23365193 (Version 1)
Quarter: 2024Q1

REPORT INFORMATION
  Report Type: Spontaneous
  Country: US (occurrence: US)
  Receive Date: 20240104
  Receipt Date: 20240104
  Transmission Date: 20240410
  Serious: Yes (Other)
  Sender: FDA-Public Use
  Company Number: US-GLENMARK PHARMACEUTICALS-2024GMK088057

PATIENT

DRUGS (4)
  1. LIDOCAINE [Suspect]
     Active Substance: LIDOCAINE
     Indication: Analgesic therapy
     Dosage: 1% LIDOCAINE WITH 1:100,000 EPINEPHRINE WAS LOCALLY INJECTED IN THE NASAL MUCOSA
     Route: 045
  2. LIDOCAINE [Suspect]
     Active Substance: LIDOCAINE
     Indication: Haemostasis
  3. EPINEPHRINE [Suspect]
     Active Substance: EPINEPHRINE
     Indication: Haemostasis
     Dosage: 1% LIDOCAINE WITH 1:100,000 EPINEPHRINE WAS LOCALLY INJECTED
     Route: 045
  4. EPINEPHRINE [Suspect]
     Active Substance: EPINEPHRINE
     Indication: Analgesic therapy

REACTIONS (3)
  - Acute pulmonary oedema [Recovering/Resolving]
  - Stress cardiomyopathy [Recovering/Resolving]
  - Cardiogenic shock [Recovering/Resolving]
